FAERS Safety Report 17600430 (Version 3)
Quarter: 2020Q2

REPORT INFORMATION
  Report Type: Spontaneous
  Country: EC (occurrence: EC)
  Receive Date: 20200330
  Receipt Date: 20200627
  Transmission Date: 20200713
  Serious: Yes (Death, Other)
  Sender: FDA-Public Use
  Company Number: EC-AMGEN-ECUSP2020050207

PATIENT
  Age: 67 Year
  Sex: Female
  Weight: 45 kg

DRUGS (3)
  1. NEULASTIM [Suspect]
     Active Substance: PEGFILGRASTIM
     Indication: LUNG CANCER METASTATIC
     Dosage: 6 MILLIGRAM, CYCLICAL
     Route: 058
     Dates: start: 201907, end: 201909
  2. CARBOPLATIN. [Concomitant]
     Active Substance: CARBOPLATIN
     Indication: LUNG CANCER METASTATIC
     Dosage: 450 MILLIGRAM, CYCLICAL
     Route: 042
     Dates: start: 201907, end: 201910
  3. PACLITAXEL. [Concomitant]
     Active Substance: PACLITAXEL
     Indication: LUNG CANCER METASTATIC
     Dosage: 175 MILLIGRAM/SQ. METER, CYCLICAL
     Route: 042
     Dates: start: 201907, end: 201910

REACTIONS (3)
  - Death [Fatal]
  - Performance status decreased [Unknown]
  - Dyspnoea [Unknown]

NARRATIVE: CASE EVENT DATE: 20200130
